FAERS Safety Report 25373583 (Version 1)
Quarter: 2025Q2

REPORT INFORMATION
  Report Type: Spontaneous
  Country: FR (occurrence: FR)
  Receive Date: 20250529
  Receipt Date: 20250529
  Transmission Date: 20250717
  Serious: Yes (Hospitalization, Other)
  Sender: ROCHE
  Company Number: FR-ROCHE-10000296479

PATIENT
  Age: 34 Year
  Sex: Female

DRUGS (4)
  1. RITUXIMAB [Suspect]
     Active Substance: RITUXIMAB
     Indication: Relapsing-remitting multiple sclerosis
     Route: 065
     Dates: start: 2017, end: 2020
  2. OCRELIZUMAB [Suspect]
     Active Substance: OCRELIZUMAB
     Indication: Relapsing-remitting multiple sclerosis
     Route: 065
     Dates: start: 2021
  3. CEFTRIAXONE [Concomitant]
     Active Substance: CEFTRIAXONE
  4. OFLOXACIN [Concomitant]
     Active Substance: OFLOXACIN

REACTIONS (4)
  - Off label use [Unknown]
  - Ureaplasma infection [Unknown]
  - Hypogammaglobulinaemia [Unknown]
  - Arthritis bacterial [Unknown]
